FAERS Safety Report 23019803 (Version 2)
Quarter: 2023Q4

REPORT INFORMATION
  Report Type: Spontaneous
  Country: US (occurrence: US)
  Receive Date: 20231003
  Receipt Date: 20231109
  Transmission Date: 20240110
  Serious: No
  Sender: FDA-Public Use
  Company Number: US-002147023-NVSC2023US211308

PATIENT
  Age: 57 Year
  Sex: Male
  Weight: 110 kg

DRUGS (1)
  1. LUTATHERA [Suspect]
     Active Substance: LUTETIUM OXODOTREOTIDE LU-177
     Indication: Neuroendocrine tumour
     Dosage: 200 MCI, Q2MO
     Route: 042
     Dates: start: 20230721

REACTIONS (1)
  - Nail discolouration [Recovered/Resolved]

NARRATIVE: CASE EVENT DATE: 20230915
